FAERS Safety Report 15339142 (Version 1)
Quarter: 2018Q3

REPORT INFORMATION
  Report Type: Spontaneous
  Country: US (occurrence: US)
  Receive Date: 20180831
  Receipt Date: 20180831
  Transmission Date: 20181010
  Serious: No
  Sender: FDA-Public Use
  Company Number: US-RECKITT BENCKISER HEALTHCARE INT LIMITED-RB-83995-2018

PATIENT
  Age: 58 Year
  Sex: Female

DRUGS (1)
  1. MUCINEX D [Suspect]
     Active Substance: GUAIFENESIN\PSEUDOEPHEDRINE HYDROCHLORIDE
     Indication: PRODUCT USED FOR UNKNOWN INDICATION
     Dosage: 1200 MG, SINGLE
     Route: 065
     Dates: start: 20180208, end: 20180208

REACTIONS (5)
  - Adverse reaction [Unknown]
  - Hypersensitivity [Unknown]
  - Erythema [Recovering/Resolving]
  - Acne [Unknown]
  - Pruritus [Recovered/Resolved]

NARRATIVE: CASE EVENT DATE: 20180208
